FAERS Safety Report 4662568-X (Version None)
Quarter: 2005Q2

REPORT INFORMATION
  Report Type: 
  Country: None (occurrence: None)
  Receive Date: 20050512
  Receipt Date: 20050414
  Transmission Date: 20051028
  Serious: Yes (Hospitalization)
  Sender: FDA-Public Use
  Company Number: PAR_0033_2005

PATIENT
  Sex: Female

DRUGS (2)
  1. ISOPTIN [Suspect]
     Dosage: PO
     Route: 048
  2. PERINODOPRIL [Concomitant]

REACTIONS (1)
  - THROMBOCYTOPENIA [None]
